FAERS Safety Report 13238817 (Version 3)
Quarter: 2017Q1

REPORT INFORMATION
  Report Type: Spontaneous
  Country: ES (occurrence: ES)
  Receive Date: 20170216
  Receipt Date: 20170325
  Transmission Date: 20170428
  Serious: Yes (Other)
  Sender: FDA-Public Use
  Company Number: ES-AMGEN-ESPSP2017023251

PATIENT
  Age: 58 Year
  Sex: Female

DRUGS (3)
  1. OMEPRAZOLE. [Concomitant]
     Active Substance: OMEPRAZOLE
  2. HIDROFEROL [Concomitant]
     Active Substance: CALCIFEDIOL
     Dosage: 0.266 UNK, QMO
     Dates: start: 201402
  3. PROLIA [Suspect]
     Active Substance: DENOSUMAB
     Indication: OSTEOPOROSIS
     Dosage: UNK, Q6MO
     Route: 065
     Dates: start: 201402

REACTIONS (3)
  - Hyperparathyroidism [Unknown]
  - Spinal compression fracture [Unknown]
  - Tooth extraction [Unknown]

NARRATIVE: CASE EVENT DATE: 20161125
